FAERS Safety Report 18414119 (Version 2)
Quarter: 2020Q4

REPORT INFORMATION
  Report Type: Report from Study
  Country: IL (occurrence: IL)
  Receive Date: 20201022
  Receipt Date: 20201124
  Transmission Date: 20210114
  Serious: Yes (Disabling)
  Sender: FDA-Public Use
  Company Number: IL-SA-2020SA194827

PATIENT

DRUGS (2)
  1. ALEMTUZUMAB [Suspect]
     Active Substance: ALEMTUZUMAB
     Dosage: UNK
     Route: 065
     Dates: start: 20200722
  2. ALEMTUZUMAB [Suspect]
     Active Substance: ALEMTUZUMAB
     Dosage: UNK
     Route: 065

REACTIONS (7)
  - COVID-19 [Unknown]
  - Pain in extremity [Unknown]
  - Headache [Unknown]
  - Mobility decreased [Unknown]
  - Dysuria [Unknown]
  - Coronavirus test positive [Unknown]
  - Headache [Unknown]

NARRATIVE: CASE EVENT DATE: 20200722
